FAERS Safety Report 12711729 (Version 2)
Quarter: 2016Q4

REPORT INFORMATION
  Report Type: Spontaneous
  Country: CR (occurrence: CR)
  Receive Date: 20160902
  Receipt Date: 20161003
  Transmission Date: 20170207
  Serious: Yes (Other)
  Sender: FDA-Public Use
  Company Number: PHHY2016CR121095

PATIENT
  Sex: Female
  Weight: 60 kg

DRUGS (1)
  1. GILENYA [Suspect]
     Active Substance: FINGOLIMOD HYDROCHLORIDE
     Indication: MULTIPLE SCLEROSIS
     Dosage: 0.5 MG, QD
     Route: 048

REACTIONS (6)
  - Asthenia [Recovering/Resolving]
  - Pain [Unknown]
  - Hypoaesthesia [Recovering/Resolving]
  - Urinary incontinence [Recovering/Resolving]
  - Multiple sclerosis relapse [Recovering/Resolving]
  - Vision blurred [Recovering/Resolving]
